FAERS Safety Report 6930562-1 (Version None)
Quarter: 2010Q3

REPORT INFORMATION
  Report Type: 
  Country: None (occurrence: None)
  Receive Date: 20100818
  Receipt Date: 20100812
  Transmission Date: 20110219
  Serious: Yes (Life-Threatening, Hospitalization)
  Sender: FDA-Public Use
  Company Number: B0669607A

PATIENT
  Sex: Male

DRUGS (2)
  1. AMOXICILLIN [Suspect]
     Indication: COUGH
     Route: 048
     Dates: start: 20100623, end: 20100623
  2. OROPIVALONE [Concomitant]
     Indication: COUGH
     Route: 065
     Dates: start: 20100623

REACTIONS (7)
  - ANAPHYLACTIC SHOCK [None]
  - BLOOD PRESSURE DECREASED [None]
  - FALL [None]
  - HEAD INJURY [None]
  - MALAISE [None]
  - PARAESTHESIA [None]
  - URTICARIA [None]
